FAERS Safety Report 7572869-3 (Version None)
Quarter: 2011Q2

REPORT INFORMATION
  Report Type: 
  Country: None (occurrence: None)
  Receive Date: 20110627
  Receipt Date: 20110615
  Transmission Date: 20111010
  Serious: No
  Sender: FDA-Public Use
  Company Number: CA-ELI_LILLY_AND_COMPANY-CA201106004268

PATIENT
  Sex: Female

DRUGS (14)
  1. MAVIK [Concomitant]
  2. DIVALPROEX SODIUM [Concomitant]
  3. ZYPREXA [Suspect]
     Dosage: 2.5 MG, EACH EVENING
  4. METHOTRIMEPRAZINE [Concomitant]
  5. RISPERDAL [Concomitant]
  6. FLUOXETINE HCL [Concomitant]
  7. SERTRALINE [Concomitant]
  8. AMITRIPTYLINE HCL [Concomitant]
  9. ZYPREXA [Suspect]
     Indication: BORDERLINE PERSONALITY DISORDER
     Dosage: 5 MG, EACH EVENING
     Dates: start: 19981124
  10. CELEXA [Concomitant]
  11. LITHIUM CARBONATE [Concomitant]
  12. SEROQUEL [Concomitant]
  13. ATENOLOL [Concomitant]
  14. CLONAZEPAM [Concomitant]

REACTIONS (6)
  - HYPERCHOLESTEROLAEMIA [None]
  - BLOOD TRIGLYCERIDES INCREASED [None]
  - WEIGHT INCREASED [None]
  - MENORRHAGIA [None]
  - OFF LABEL USE [None]
  - DIABETES MELLITUS [None]
